FAERS Safety Report 9053159 (Version 3)
Quarter: 2013Q2

REPORT INFORMATION
  Report Type: Spontaneous
  Country: US (occurrence: US)
  Receive Date: 20130208
  Receipt Date: 20130410
  Transmission Date: 20140414
  Serious: Yes (Hospitalization)
  Sender: FDA-Public Use
  Company Number: US-BIOGENIDEC-2013BI011631

PATIENT
  Age: 61 Year
  Sex: Female
  Weight: 83 kg

DRUGS (11)
  1. TYSABRI [Suspect]
     Indication: MULTIPLE SCLEROSIS
     Route: 042
     Dates: start: 20120109
  2. ALBUTEROL [Concomitant]
     Route: 055
  3. AMBIEN CR [Concomitant]
  4. DULERA [Concomitant]
  5. DULERA [Concomitant]
  6. VITAMIN D [Concomitant]
  7. THEOPHYLLINE ER [Concomitant]
     Route: 048
  8. TUDORZA PRESSAIR [Concomitant]
  9. OXYCODONE ACETAMINOPHEN [Concomitant]
  10. OXYCODONE ACETAMINOPHEN [Concomitant]
  11. SINGULAIR [Concomitant]

REACTIONS (2)
  - Noninfective bronchitis [Recovered/Resolved]
  - Chronic obstructive pulmonary disease [Recovered/Resolved]
